FAERS Safety Report 5190424-X (Version None)
Quarter: 2006Q4

REPORT INFORMATION
  Report Type: 
  Country: None (occurrence: None)
  Receive Date: 20061222
  Receipt Date: 20061006
  Transmission Date: 20070319
  Serious: Yes (Other)
  Sender: FDA-Public Use
  Company Number: PHEH2006US12637

PATIENT
  Age: 53 Year
  Sex: Male

DRUGS (7)
  1. DARVOCET-N 100 [Concomitant]
     Dosage: 100 MG, PRN
     Route: 048
  2. CLARITIN [Concomitant]
     Dosage: 10 MG, QD
     Route: 048
  3. NEXIUM [Concomitant]
     Route: 048
  4. NEXIUM [Concomitant]
     Route: 048
  5. GLEEVEC [Suspect]
     Indication: CHRONIC MYELOID LEUKAEMIA
     Dosage: 400 MG, QD
     Route: 048
     Dates: start: 20050101, end: 20060801
  6. GLEEVEC [Suspect]
     Dosage: 600 MG, QD
     Route: 048
     Dates: start: 20060801
  7. GLEEVEC [Suspect]
     Dosage: 600 MG, QD
     Route: 048
     Dates: start: 20031201

REACTIONS (6)
  - BLOOD CHOLESTEROL INCREASED [None]
  - BLOOD URINE PRESENT [None]
  - FATIGUE [None]
  - HAEMATURIA [None]
  - MUSCLE SPASMS [None]
  - PROSTATITIS [None]
